FAERS Safety Report 22089759 (Version 1)
Quarter: 2023Q1

REPORT INFORMATION
  Report Type: Spontaneous
  Country: ES (occurrence: None)
  Receive Date: 20230313
  Receipt Date: 20230313
  Transmission Date: 20230418
  Serious: Yes (Life-Threatening, Hospitalization)
  Sender: FDA-Public Use
  Company Number: 2023A055988

PATIENT
  Age: 63 Year
  Sex: Male

DRUGS (3)
  1. TICAGRELOR [Interacting]
     Active Substance: TICAGRELOR
     Indication: Cardiovascular event prophylaxis
     Route: 048
     Dates: start: 20230221, end: 20230222
  2. ENOXAPARIN [Interacting]
     Active Substance: ENOXAPARIN
     Route: 058
     Dates: start: 20230222, end: 20230222
  3. ASPIRIN [Interacting]
     Active Substance: ASPIRIN
     Indication: Cardiovascular event prophylaxis
     Route: 048
     Dates: start: 202207

REACTIONS (2)
  - Rectal haemorrhage [Unknown]
  - Deprescribing error [Unknown]

NARRATIVE: CASE EVENT DATE: 20230223
